FAERS Safety Report 13384096 (Version 1)
Quarter: 2017Q1

REPORT INFORMATION
  Report Type: Spontaneous
  Country: US (occurrence: US)
  Receive Date: 20170329
  Receipt Date: 20170329
  Transmission Date: 20170429
  Serious: No
  Sender: FDA-Public Use
  Company Number: US-ALLERGAN-2017-000024

PATIENT
  Age: 49 Year
  Sex: Female
  Weight: 63.04 kg

DRUGS (3)
  1. ESTRACE [Suspect]
     Active Substance: ESTRADIOL
     Indication: ATROPHIC VULVOVAGINITIS
  2. ESTRADIOL. [Concomitant]
     Active Substance: ESTRADIOL
     Indication: HORMONE REPLACEMENT THERAPY
     Dosage: UNKNOWN TABLETS
     Route: 048
  3. ESTRACE [Suspect]
     Active Substance: ESTRADIOL
     Indication: VULVOVAGINAL DRYNESS
     Dosage: PEA SIZED AMOUNT TO VAGINAL OPENING THREE TIMES WEEKLY
     Route: 061
     Dates: start: 20160929

REACTIONS (4)
  - Wrong technique in product usage process [Unknown]
  - Fungal infection [Recovered/Resolved]
  - Drug prescribing error [Unknown]
  - Vulvovaginal pruritus [Recovered/Resolved]

NARRATIVE: CASE EVENT DATE: 20160929
